FAERS Safety Report 10381146 (Version 1)
Quarter: 2014Q1

REPORT INFORMATION
  Report Type: Spontaneous
  Country: US (occurrence: None)
  Receive Date: 20140306
  Receipt Date: 20140306
  Transmission Date: 20141002
  Serious: Yes (Other)
  Sender: FDA-Public Use
  Company Number: 163-21880-13030392

PATIENT
  Age: 84 Year
  Sex: Male
  Weight: 83 kg

DRUGS (11)
  1. REVLIMID (LENALIDOMIDE) (25 MILLIGRAM, CAPSULES) [Suspect]
     Indication: PLASMA CELL MYELOMA
     Dosage: 25 MG, 28 IN 28 D, PO
     Route: 048
     Dates: start: 20130227, end: 20130319
  2. AMLODIPINE (AMLODIPINE) [Concomitant]
  3. FUROSEMIDE (FUROSEMIDE) [Concomitant]
  4. ALFUZOSIN (ALFUZOSIN) [Concomitant]
  5. GABAPENTIN (GABAPENTIN) [Concomitant]
  6. GLIPIZIDE (GLIPIZINE) [Concomitant]
  7. METFORMIN (METFORMIN) [Concomitant]
  8. PANTOPRAZOLE (PANTOPRAZOLE) [Concomitant]
  9. SIMVASTATIN (SIMVASTATIN) [Concomitant]
  10. FLOMAX (TAMSULOSIN HYDROCHLORIDE) [Concomitant]
  11. ZOLPIDEM (ZOLPIDEM) [Concomitant]

REACTIONS (5)
  - Platelet count decreased [None]
  - Mood altered [None]
  - Local swelling [None]
  - Depression [None]
  - Thrombocytopenic purpura [None]
